FAERS Safety Report 6527223-X (Version None)
Quarter: 2009Q4

REPORT INFORMATION
  Report Type: 
  Country: None (occurrence: None)
  Receive Date: 20091230
  Receipt Date: 20091217
  Transmission Date: 20100525
  Serious: Yes (Hospitalization, Other)
  Sender: FDA-Public Use
  Company Number: POMP-1000782

PATIENT
  Age: 35 Year
  Sex: Male

DRUGS (1)
  1. MYOZYME [Suspect]
     Indication: GLYCOGEN STORAGE DISEASE TYPE II
     Dosage: 20 MG/KG, 1X/W, INTRAVENOUS
     Route: 042

REACTIONS (2)
  - HYPNAGOGIC HALLUCINATION [None]
  - RESPIRATORY DISTRESS [None]
